FAERS Safety Report 10668474 (Version 2)
Quarter: 2014Q4

REPORT INFORMATION
  Report Type: Spontaneous
  Country: US (occurrence: US)
  Receive Date: 20141222
  Receipt Date: 20141222
  Transmission Date: 20150529
  Serious: No
  Sender: FDA-Public Use
  Company Number: US-009507513-1107USA02865

PATIENT
  Sex: Male

DRUGS (1)
  1. PROPECIA [Suspect]
     Active Substance: FINASTERIDE
     Indication: ALOPECIA
     Dosage: 1 MG, UNK
     Route: 048
     Dates: start: 20050428, end: 200812

REACTIONS (9)
  - Cognitive disorder [Unknown]
  - Erectile dysfunction [Unknown]
  - Blood testosterone decreased [Unknown]
  - Vasectomy [Unknown]
  - Sexual dysfunction [Unknown]
  - Depression [Not Recovered/Not Resolved]
  - Anorgasmia [Unknown]
  - Anxiety [Not Recovered/Not Resolved]
  - Libido decreased [Unknown]

NARRATIVE: CASE EVENT DATE: 2007
